FAERS Safety Report 19963651 (Version 1)
Quarter: 2021Q4

REPORT INFORMATION
  Report Type: Spontaneous
  Country: MY (occurrence: MY)
  Receive Date: 20211018
  Receipt Date: 20211018
  Transmission Date: 20220303
  Serious: Yes (Death, Hospitalization)
  Sender: FDA-Public Use
  Company Number: MY-MYLANLABS-2021M1073568

PATIENT
  Age: 18 Year
  Sex: Male

DRUGS (9)
  1. ETOPOSIDE [Suspect]
     Active Substance: ETOPOSIDE
     Indication: Acute lymphocytic leukaemia
     Dosage: CONSOLIDATION PHASE OF CHEMOTHERAPY ON WEEK 66 WITH MODIFIED GERMAN ALL PROTOCOL, THROUGH CHEMOPORT
  2. METHYLPREDNISOLONE [Suspect]
     Active Substance: METHYLPREDNISOLONE
     Indication: Mycobacterial infection
     Dosage: UNK
     Route: 042
  3. CYTARABINE [Suspect]
     Active Substance: CYTARABINE
     Indication: Acute lymphocytic leukaemia
     Dosage: CONSOLIDATION PHASE OF CHEMOTHERAPY ON WEEK 66 WITH MODIFIED GERMAN ALL PROTOCOL THROUGH CHEMOPORT
  4. METHOTREXATE [Suspect]
     Active Substance: METHOTREXATE
     Indication: Acute lymphocytic leukaemia
     Dosage: CONSOLIDATION PHASE OF CHEMOTHERAPY ON WEEK 66 WITH MODIFIED GERMAN ALL PROTOCOL THROUGH CHEMOPORT
  5. CIPROFLOXACIN [Suspect]
     Active Substance: CIPROFLOXACIN
     Indication: Mycobacterial infection
     Dosage: 400 MILLIGRAM, BID
     Route: 042
  6. AMIKACIN [Suspect]
     Active Substance: AMIKACIN
     Indication: Mycobacterial infection
     Dosage: 800 MILLIGRAM, QD
     Route: 042
  7. NEUPOGEN [Suspect]
     Active Substance: FILGRASTIM
     Indication: Mycobacterial infection
     Dosage: UNK
     Route: 058
  8. IMIPENEM [Suspect]
     Active Substance: IMIPENEM
     Indication: Mycobacterial infection
     Dosage: 6 HOURLY
     Route: 042
  9. CEFEPIME [Concomitant]
     Active Substance: CEFEPIME HYDROCHLORIDE
     Indication: Evidence based treatment
     Dosage: 1 GRAM, BID
     Route: 042

REACTIONS (2)
  - Neutropenic sepsis [Fatal]
  - Drug ineffective [Fatal]
